FAERS Safety Report 5103032-3 (Version None)
Quarter: 2006Q3

REPORT INFORMATION
  Report Type: 
  Country: None (occurrence: None)
  Receive Date: 20060908
  Receipt Date: 20060831
  Transmission Date: 20061208
  Serious: Yes (Life-Threatening, Other)
  Sender: FDA-Public Use
  Company Number: JP-2006-023709

PATIENT
  Age: 69 Year
  Sex: Female

DRUGS (7)
  1. PROSCOPE 300 (IOPROMIDE)INFUSION [Suspect]
     Indication: COMPUTERISED TOMOGRAM ABDOMEN
     Dosage: 90 ML, 1 DOSE, IV BOLUS
     Route: 040
     Dates: start: 20060810, end: 20060810
  2. BERIZYM (ENZYMES NOS) [Concomitant]
  3. CEREKINON (TRIMEBUTINE MALEATE) [Concomitant]
  4. PRAVASTATIN [Concomitant]
  5. BASEN (VOGLIBOSE) [Concomitant]
  6. LAC B (LACTOBACILLUS BIFIDUS, LYOPHILIZED) [Concomitant]
  7. ZYRTEC [Concomitant]

REACTIONS (4)
  - ABDOMINAL PAIN [None]
  - ANAPHYLACTOID SHOCK [None]
  - COLD SWEAT [None]
  - HYPOTENSION [None]
